FAERS Safety Report 7994966-0 (Version None)
Quarter: 2011Q4

REPORT INFORMATION
  Report Type: 
  Country: None (occurrence: None)
  Receive Date: 20111220
  Receipt Date: 20111003
  Transmission Date: 20120403
  Serious: No
  Sender: FDA-Public Use
  Company Number: US-MYLANLABS-2011S1019285

PATIENT
  Age: 71 Year
  Sex: Female
  Weight: 99.79 kg

DRUGS (3)
  1. SYNTHROID [Concomitant]
     Dosage: PRIOR TO 2001
  2. LETROZOLE [Suspect]
     Indication: BREAST CANCER
     Route: 048
     Dates: start: 20110718, end: 20110814
  3. ZETIA [Concomitant]
     Dosage: PRIOR TO 2001

REACTIONS (1)
  - PRURITUS [None]
